FAERS Safety Report 23934447 (Version 1)
Quarter: 2024Q2

REPORT INFORMATION
  Report Type: Spontaneous
  Country: IT (occurrence: None)
  Receive Date: 20240603
  Receipt Date: 20240603
  Transmission Date: 20240715
  Serious: Yes (Life-Threatening, Other)
  Sender: FDA-Public Use
  Company Number: 2024A126575

PATIENT
  Age: 24776 Day
  Sex: Male

DRUGS (5)
  1. DAPAGLIFLOZIN [Suspect]
     Active Substance: DAPAGLIFLOZIN
     Indication: Type 2 diabetes mellitus
     Route: 048
     Dates: start: 202205, end: 20240522
  2. ROSUVASTATIN [Concomitant]
     Active Substance: ROSUVASTATIN
  3. PLAVIX [Concomitant]
     Active Substance: CLOPIDOGREL BISULFATE
  4. ASPIRIN DL-LYSINE [Concomitant]
     Active Substance: ASPIRIN DL-LYSINE
  5. CARVEDILOL [Concomitant]
     Active Substance: CARVEDILOL

REACTIONS (25)
  - Diabetic metabolic decompensation [Unknown]
  - Fournier^s gangrene [Unknown]
  - Fungal infection [Recovering/Resolving]
  - Azotaemia [Not Recovered/Not Resolved]
  - Hypotension [Recovering/Resolving]
  - Nephritis [Not Recovered/Not Resolved]
  - Headache [Unknown]
  - Somnolence [Unknown]
  - Asthenia [Not Recovered/Not Resolved]
  - Back pain [Unknown]
  - Dyspnoea [Unknown]
  - Dyspepsia [Unknown]
  - Decreased appetite [Unknown]
  - Polyuria [Recovering/Resolving]
  - Tremor [Not Recovered/Not Resolved]
  - Bedridden [Not Recovered/Not Resolved]
  - Drug ineffective [Unknown]
  - Pyrexia [Not Recovered/Not Resolved]
  - Hepatic pain [Unknown]
  - Balanoposthitis [Recovering/Resolving]
  - Fatigue [Not Recovered/Not Resolved]
  - Arthralgia [Unknown]
  - Abdominal pain upper [Unknown]
  - Polydipsia [Recovering/Resolving]
  - Dehydration [Recovering/Resolving]

NARRATIVE: CASE EVENT DATE: 20220501
